FAERS Safety Report 7917650-8 (Version None)
Quarter: 2011Q4

REPORT INFORMATION
  Report Type: 
  Country: None (occurrence: None)
  Receive Date: 20111114
  Receipt Date: 20111101
  Transmission Date: 20120403
  Serious: Yes (Hospitalization)
  Sender: FDA-Public Use
  Company Number: TPA2011A05763

PATIENT
  Sex: Male

DRUGS (2)
  1. ACTOS [Suspect]
     Indication: DIABETES MELLITUS
     Dosage: 15 MG, 1 IN 1 D
     Dates: start: 20051006, end: 20080311
  2. ACTOPLUS MET [Suspect]
     Indication: DIABETES MELLITUS
     Dosage: 15 MG/850 MG, 2 IN 1 D
     Dates: start: 20080720, end: 20100217

REACTIONS (1)
  - BLADDER CANCER [None]
